FAERS Safety Report 7935919-8 (Version None)
Quarter: 2011Q4

REPORT INFORMATION
  Report Type: 
  Country: None (occurrence: None)
  Receive Date: 20111123
  Receipt Date: 20111118
  Transmission Date: 20120403
  Serious: Yes (Death, Hospitalization)
  Sender: FDA-Public Use
  Company Number: PE-ELI_LILLY_AND_COMPANY-PE200910003101

PATIENT
  Sex: Female

DRUGS (6)
  1. GEMCITABINE HYDROCHLORIDE [Suspect]
     Indication: BREAST CANCER METASTATIC
     Dosage: 1000 MG/M2, OTHER
     Route: 042
     Dates: start: 20090930
  2. VINFLUNINE [Suspect]
     Indication: BREAST CANCER METASTATIC
     Dosage: 320 MG/M2, OTHER
     Route: 042
     Dates: start: 20090930
  3. SPIRONOLACTONE [Concomitant]
     Dates: start: 20090909
  4. DIMENHYDRINATE [Concomitant]
     Dates: start: 20090915
  5. CEFTAZIDIME [Concomitant]
  6. CIPROFLOXACIN [Concomitant]

REACTIONS (7)
  - SEPTIC SHOCK [None]
  - DEHYDRATION [None]
  - METABOLIC ALKALOSIS [None]
  - HYPOKALAEMIA [None]
  - PLATELET COUNT DECREASED [None]
  - NEUTROPENIA [None]
  - HYPERGLYCAEMIA [None]
